FAERS Safety Report 9718332 (Version 1)
Quarter: 2013Q4

REPORT INFORMATION
  Report Type: Spontaneous
  Country: US (occurrence: US)
  Receive Date: 20131127
  Receipt Date: 20131127
  Transmission Date: 20140711
  Serious: Yes (Other)
  Sender: FDA-Public Use
  Company Number: US-ACTAVIS-2013-21182

PATIENT
  Age: 70 Year
  Sex: Male

DRUGS (3)
  1. SIMVASTATIN (WATSON LABORATORIES) [Suspect]
     Indication: PRODUCT USED FOR UNKNOWN INDICATION
     Dosage: UNKNOWN
     Route: 065
  2. RIVASTIGMINE [Concomitant]
     Indication: DEMENTIA
     Dosage: UNKNOWN
     Route: 065
  3. MIRTAZAPINE [Concomitant]
     Indication: AFFECTIVE DISORDER
     Dosage: UNKNOWN
     Route: 065

REACTIONS (1)
  - Cognitive disorder [Recovering/Resolving]
